FAERS Safety Report 10474216 (Version 1)
Quarter: 2014Q3

REPORT INFORMATION
  Report Type: Spontaneous
  Country: US (occurrence: US)
  Receive Date: 20140924
  Receipt Date: 20140924
  Transmission Date: 20150326
  Serious: No
  Sender: FDA-Public Use
  Company Number: US-009507513-1409USA005822

PATIENT
  Sex: Male

DRUGS (2)
  1. ZETIA [Suspect]
     Active Substance: EZETIMIBE
     Dosage: UNK
     Route: 048
  2. ZETIA [Suspect]
     Active Substance: EZETIMIBE
     Dosage: UNK
     Route: 048

REACTIONS (3)
  - Arthritis [Recovering/Resolving]
  - Blood cholesterol decreased [Unknown]
  - Blood cholesterol increased [Unknown]
